FAERS Safety Report 9704297 (Version 1)
Quarter: 2013Q4

REPORT INFORMATION
  Report Type: Spontaneous
  Country: US (occurrence: None)
  Receive Date: 20131121
  Receipt Date: 20131121
  Transmission Date: 20140711
  Serious: Yes (Other)
  Sender: FDA-Public Use
  Company Number: None

PATIENT
  Age: 25 Year
  Sex: Female

DRUGS (10)
  1. TOBRAMYCIN [Suspect]
     Indication: CYSTIC FIBROSIS
     Route: 042
     Dates: start: 20110810, end: 20110826
  2. IBUPROFEN [Concomitant]
  3. OXYCODONE [Concomitant]
  4. ALBUTEROL [Concomitant]
  5. ADVAIR [Concomitant]
  6. DELORTADINE [Concomitant]
  7. AZITHROMYCIN [Concomitant]
  8. DORNASE [Concomitant]
  9. BACTRIM [Concomitant]
  10. PANCREATIC ENZYMES [Concomitant]

REACTIONS (1)
  - Tinnitus [None]
